FAERS Safety Report 8447867-8 (Version None)
Quarter: 2012Q2

REPORT INFORMATION
  Report Type: 
  Country: None (occurrence: None)
  Receive Date: 20120612
  Receipt Date: 20120606
  Transmission Date: 20120825
  Serious: Yes (Life-Threatening, Hospitalization)
  Sender: FDA-Public Use
  Company Number: 2012SP030364

PATIENT
  Age: 41 Year
  Sex: Female
  Weight: 80 kg

DRUGS (1)
  1. DESOGESTREL AND ETHINYL ESTRADIOL [Suspect]
     Indication: CONTRACEPTION
     Dosage: ;PO
     Route: 048
     Dates: start: 20050101, end: 20120605

REACTIONS (3)
  - SUBARACHNOID HAEMORRHAGE [None]
  - HYPERTENSION [None]
  - ANEURYSM [None]
